FAERS Safety Report 5737460-X (Version None)
Quarter: 2008Q2

REPORT INFORMATION
  Report Type: 
  Country: None (occurrence: None)
  Receive Date: 20080514
  Receipt Date: 20080327
  Transmission Date: 20081010
  Serious: No
  Sender: FDA-Public Use
  Company Number: US-BRISTOL-MYERS SQUIBB COMPANY-14132286

PATIENT
  Age: 39 Year
  Sex: Female

DRUGS (1)
  1. IXEMPRA KIT [Suspect]
     Dosage: 4TH CYCLE HELD TEMPORARILY

REACTIONS (2)
  - SKIN INFECTION [None]
  - SKIN NECROSIS [None]
